FAERS Safety Report 4948704-6 (Version None)
Quarter: 2006Q1

REPORT INFORMATION
  Report Type: 
  Country: None (occurrence: None)
  Receive Date: 20060313
  Receipt Date: 20060228
  Transmission Date: 20060701
  Serious: Yes (Hospitalization)
  Sender: FDA-Public Use
  Company Number: 2005173211

PATIENT
  Age: 21 Year
  Sex: Female
  Weight: 79 kg

DRUGS (3)
  1. DEPO-PROVERA [Suspect]
     Indication: CONTRACEPTION
     Dosage: 150 MG (150 MG, EVERY 3 MONTHS), INTRAMUSCULAR
     Route: 030
  2. PSYCHOLEPTICS (PSYCHOLEPTICS) [Suspect]
     Indication: MENTAL DISORDER
     Dosage: UNKNOWN
     Route: 065
  3. SEROQUEL [Concomitant]

REACTIONS (3)
  - AGGRESSION [None]
  - CONDITION AGGRAVATED [None]
  - LIBIDO INCREASED [None]
